FAERS Safety Report 19846377 (Version 1)
Quarter: 2021Q3

REPORT INFORMATION
  Report Type: Spontaneous
  Country: US (occurrence: US)
  Receive Date: 20210917
  Receipt Date: 20210917
  Transmission Date: 20211014
  Serious: Yes (Other)
  Sender: FDA-Public Use
  Company Number: US-CIPLA LTD.-2021US06353

PATIENT

DRUGS (17)
  1. RITUXIMAB. [Suspect]
     Active Substance: RITUXIMAB
     Dosage: UNK, 3 CYCLES (CYCLICAL)
     Route: 065
     Dates: start: 201503
  2. OXALIPLATIN. [Suspect]
     Active Substance: OXALIPLATIN
     Indication: DIFFUSE LARGE B-CELL LYMPHOMA
     Dosage: UNK, 4 CYCLES OF SALVAGE CHEMOTHERAPY (CYCLICAL)
     Route: 065
     Dates: start: 201805
  3. TAFASITAMAB [Suspect]
     Active Substance: TAFASITAMAB
     Indication: DIFFUSE LARGE B-CELL LYMPHOMA
     Dosage: UNK, 6 CYCLES (CYCLICAL)
     Route: 065
     Dates: start: 201710
  4. AZACITIDINE. [Suspect]
     Active Substance: AZACITIDINE
     Indication: DIFFUSE LARGE B-CELL LYMPHOMA
     Dosage: UNK
     Route: 065
     Dates: start: 202005
  5. ETOPOSIDE. [Suspect]
     Active Substance: ETOPOSIDE
     Dosage: UNK, 3 CYCLES (CYCLICAL)
     Route: 065
     Dates: start: 201503
  6. DOXORUBICIN [Suspect]
     Active Substance: DOXORUBICIN
     Indication: DIFFUSE LARGE B-CELL LYMPHOMA
     Dosage: UNK, 6 CYCLES (CYCLICAL), DOSE?ADJUSTED
     Route: 065
     Dates: start: 201303
  7. LENALIDOMIDE [Suspect]
     Active Substance: LENALIDOMIDE
     Indication: DIFFUSE LARGE B-CELL LYMPHOMA
     Dosage: UNK, 6 CYCLES (CYCLICAL)
     Route: 065
     Dates: start: 201710
  8. CARBOPLATIN. [Suspect]
     Active Substance: CARBOPLATIN
     Indication: DIFFUSE LARGE B-CELL LYMPHOMA
     Dosage: UNK, 3 CYCLES (CYCLICAL)
     Route: 065
     Dates: start: 201503
  9. ETOPOSIDE. [Suspect]
     Active Substance: ETOPOSIDE
     Indication: DIFFUSE LARGE B-CELL LYMPHOMA
     Dosage: UNK, 6 CYCLES (CYCLICAL), DOSE?ADJUSTED
     Route: 065
     Dates: start: 201303
  10. PREDNISONE. [Suspect]
     Active Substance: PREDNISONE
     Indication: DIFFUSE LARGE B-CELL LYMPHOMA
     Dosage: UNK, 6 CYCLES (CYCLICAL), DOSE?ADJUSTED
     Route: 065
     Dates: start: 201303
  11. AXICABTAGENE CILOLEUCEL [Concomitant]
     Active Substance: AXICABTAGENE CILOLEUCEL
     Indication: DIFFUSE LARGE B-CELL LYMPHOMA
     Dosage: UNK
     Route: 065
     Dates: start: 201809
  12. CYCLOPHOSPHAMIDE. [Suspect]
     Active Substance: CYCLOPHOSPHAMIDE
     Indication: DIFFUSE LARGE B-CELL LYMPHOMA
     Dosage: UNK, 6 CYCLES (CYCLICAL), DOSE?ADJUSTED
     Route: 065
     Dates: start: 201303
  13. RITUXIMAB. [Suspect]
     Active Substance: RITUXIMAB
     Indication: DIFFUSE LARGE B-CELL LYMPHOMA
     Dosage: UNK, 6 CYCLES (CYLICAL), DOSE?ADJUSTED
     Route: 065
     Dates: start: 201303
  14. RITUXIMAB. [Suspect]
     Active Substance: RITUXIMAB
     Dosage: UNK, 4 CYCLES OF SALVAGE CHEMOTHERAPY
     Route: 065
     Dates: start: 201805
  15. GEMCITABINE. [Suspect]
     Active Substance: GEMCITABINE
     Indication: DIFFUSE LARGE B-CELL LYMPHOMA
     Dosage: UNK, 4 CYCLES OF SALVAGE CHEMOTHERAPY (CYCLICAL)
     Route: 065
     Dates: start: 201805
  16. VINCRISTINE [Suspect]
     Active Substance: VINCRISTINE
     Indication: DIFFUSE LARGE B-CELL LYMPHOMA
     Dosage: UNK, 6 CYCLES (CYCLICAL), DOSE?ADJUSTED
     Route: 065
     Dates: start: 201303
  17. IFOSFAMIDE. [Suspect]
     Active Substance: IFOSFAMIDE
     Indication: DIFFUSE LARGE B-CELL LYMPHOMA
     Dosage: UNK, 3 CYCLES (CYCLICAL)
     Route: 065
     Dates: start: 201503

REACTIONS (1)
  - Treatment failure [Unknown]
